FAERS Safety Report 7503467-5 (Version None)
Quarter: 2011Q2

REPORT INFORMATION
  Report Type: 
  Country: None (occurrence: None)
  Receive Date: 20110525
  Receipt Date: 20110523
  Transmission Date: 20111010
  Serious: Yes (Hospitalization, Other)
  Sender: FDA-Public Use
  Company Number: DE-PFIZER INC-2011110996

PATIENT
  Age: 32 Year
  Sex: Female
  Weight: 57 kg

DRUGS (1)
  1. VENLAFAXINE HCL [Suspect]
     Indication: DEPRESSION
     Dosage: 75 MG, 1X/DAY
     Dates: start: 20101006

REACTIONS (6)
  - CHILLS [None]
  - ARTHRALGIA [None]
  - BONE PAIN [None]
  - MYALGIA [None]
  - BODY TEMPERATURE INCREASED [None]
  - SARCOIDOSIS [None]
